FAERS Safety Report 8997756 (Version 1)
Quarter: 2013Q1

REPORT INFORMATION
  Report Type: Spontaneous
  Country: US (occurrence: US)
  Receive Date: 20130104
  Receipt Date: 20130104
  Transmission Date: 20140127
  Serious: Yes (Other)
  Sender: FDA-Public Use
  Company Number: PHHY2011US33515

PATIENT
  Sex: Female

DRUGS (12)
  1. GLEEVEC [Suspect]
     Dosage: 400 MG, QD
  2. SPIRONOLACTONE [Suspect]
  3. MAGNESIUM [Suspect]
     Dosage: 800 MG
     Route: 065
  4. MAGNESIUM [Suspect]
     Dosage: 400 MG
     Route: 065
  5. NORVASC [Concomitant]
     Dosage: 5 MG
     Route: 065
  6. BISOPROLOL [Concomitant]
     Dosage: 7.5 MG, BID
  7. ACIPHEX [Concomitant]
     Dosage: 20 MG
  8. ASPIRIN [Concomitant]
     Dosage: 81 MG, UNK
  9. WELLBATRIN [Concomitant]
     Dosage: 300 MG, UNK
  10. OMEPRAZOLE [Concomitant]
  11. ZEBETA [Concomitant]
  12. VITAMIN D [Concomitant]

REACTIONS (8)
  - Herpes zoster [Unknown]
  - Diarrhoea [Unknown]
  - Dyspnoea [Unknown]
  - Weight increased [Unknown]
  - Fatigue [Unknown]
  - Skin disorder [Unknown]
  - Oedema peripheral [Unknown]
  - Weight decreased [Unknown]
